FAERS Safety Report 8538608-4 (Version None)
Quarter: 2012Q3

REPORT INFORMATION
  Report Type: 
  Country: None (occurrence: None)
  Receive Date: 20120726
  Receipt Date: 20120712
  Transmission Date: 20120928
  Serious: Yes (Hospitalization)
  Sender: FDA-Public Use
  Company Number: FR-009507513-1207FRA004750

PATIENT

DRUGS (9)
  1. PROGESTERONE [Concomitant]
     Indication: PREMATURE MENOPAUSE
  2. CANCIDAS [Concomitant]
     Dosage: UNK
     Dates: start: 20110706, end: 20110706
  3. AMIKACIN [Suspect]
     Dosage: UNK
     Dates: start: 20110703, end: 20110707
  4. ESTRADIOL [Concomitant]
     Indication: PREMATURE MENOPAUSE
  5. NOXAFIL [Concomitant]
     Dosage: UNK
     Dates: start: 20110620
  6. TAZOBACTAM [Concomitant]
     Dosage: UNK
     Route: 042
     Dates: start: 20110623
  7. TARGOCID [Suspect]
     Dosage: UNK
     Route: 042
     Dates: start: 20110630, end: 20110708
  8. TIENAM 500MG/500MG, POUDRE POUR PERFUSION [Suspect]
     Dosage: UNK
     Route: 042
     Dates: start: 20110630, end: 20110713
  9. ZOVIRAX [Concomitant]
     Dosage: UNK
     Dates: start: 20110706, end: 20110726

REACTIONS (4)
  - OEDEMA [None]
  - PRURITUS [None]
  - ERYTHEMA [None]
  - RASH SCARLATINIFORM [None]
